FAERS Safety Report 21959555 (Version 5)
Quarter: 2023Q4

REPORT INFORMATION
  Report Type: Report from Study
  Country: US (occurrence: US)
  Receive Date: 20230206
  Receipt Date: 20231114
  Transmission Date: 20240109
  Serious: Yes (Hospitalization, Other)
  Sender: FDA-Public Use
  Company Number: US-OTSUKA-2022_038389

PATIENT
  Age: 68 Year
  Sex: Male

DRUGS (4)
  1. CEDAZURIDINE\DECITABINE [Suspect]
     Active Substance: CEDAZURIDINE\DECITABINE
     Indication: Myelodysplastic syndrome
     Dosage: 1 DF (35 MG DECITABINE AND 100 MG CEDAZURIDINE) QD ON DAYS 1 TO 4 EACH 28 DAY CYCLE
     Route: 048
     Dates: start: 20210805
  2. AMIODARONE [Concomitant]
     Active Substance: AMIODARONE
     Indication: Product used for unknown indication
     Dosage: UNK (10MG EVERY OTHER DAY)
     Route: 065
     Dates: start: 202112
  3. SIMVASTATIN [Concomitant]
     Active Substance: SIMVASTATIN
     Indication: Product used for unknown indication
     Route: 065
  4. ATORVASTATIN [Concomitant]
     Active Substance: ATORVASTATIN
     Indication: Product used for unknown indication
     Dosage: UNK
     Route: 065

REACTIONS (9)
  - Illness [Unknown]
  - Transfusion [Unknown]
  - White blood cell count decreased [Unknown]
  - Palpitations [Unknown]
  - Electrocardiogram abnormal [Unknown]
  - Rhinorrhoea [Unknown]
  - Upper respiratory tract congestion [Unknown]
  - Cough [Unknown]
  - Inappropriate schedule of product administration [Unknown]

NARRATIVE: CASE EVENT DATE: 20210805
